FAERS Safety Report 4907151-3 (Version None)
Quarter: 2006Q1

REPORT INFORMATION
  Report Type: 
  Country: None (occurrence: None)
  Receive Date: 20060206
  Receipt Date: 20051021
  Transmission Date: 20060701
  Serious: Yes (Hospitalization)
  Sender: FDA-Public Use
  Company Number: JPKYO-S-20060004-V001

PATIENT
  Age: 66 Year
  Sex: Male

DRUGS (1)
  1. NAVELBINE (VINORELBINE) SOLUTION FOR INJECTION [Suspect]
     Indication: LUNG NEOPLASM MALIGNANT
     Route: 042
     Dates: start: 20050929, end: 20051007

REACTIONS (1)
  - LUNG DISORDER [None]
